FAERS Safety Report 7150508-3 (Version None)
Quarter: 2010Q4

REPORT INFORMATION
  Report Type: 
  Country: None (occurrence: None)
  Receive Date: 20101210
  Receipt Date: 20101207
  Transmission Date: 20110411
  Serious: Yes (Other)
  Sender: FDA-Public Use
  Company Number: FR-PFIZER INC-2010168063

PATIENT
  Age: 78 Year
  Sex: Female

DRUGS (1)
  1. CEFPODOXIME PROXETIL [Suspect]
     Dosage: 100 MG, UNK
     Route: 048
     Dates: start: 20101029, end: 20101106

REACTIONS (1)
  - RECTAL HAEMORRHAGE [None]
